FAERS Safety Report 6186687-4 (Version None)
Quarter: 2009Q2

REPORT INFORMATION
  Report Type: 
  Country: None (occurrence: None)
  Receive Date: 20090508
  Receipt Date: 20090508
  Transmission Date: 20091009
  Serious: No
  Sender: FDA-Public Use
  Company Number: None

PATIENT
  Age: 81 Year
  Sex: Female

DRUGS (1)
  1. OXYCONTIN [Suspect]
     Indication: PANCREATIC CARCINOMA
     Dosage: 30 MG BID PO
     Route: 048
     Dates: start: 20090426, end: 20090428

REACTIONS (2)
  - PRODUCT SUBSTITUTION ISSUE [None]
  - PRURITUS [None]
